FAERS Safety Report 4520838-X (Version None)
Quarter: 2004Q4

REPORT INFORMATION
  Report Type: 
  Country: None (occurrence: None)
  Receive Date: 20041028
  Receipt Date: 20040728
  Transmission Date: 20050328
  Serious: Yes (Other)
  Sender: FDA-Public Use
  Company Number: HQWYE683202AUG04

PATIENT
  Sex: Female

DRUGS (4)
  1. PREMARIN [Suspect]
  2. PREMPHASE 14/14 [Suspect]
  3. PREMPRO [Suspect]
  4. PROVERA [Suspect]

REACTIONS (1)
  - BREAST CANCER [None]
